FAERS Safety Report 23865522 (Version 2)
Quarter: 2024Q2

REPORT INFORMATION
  Report Type: Spontaneous
  Country: US (occurrence: US)
  Receive Date: 20240517
  Receipt Date: 20240527
  Transmission Date: 20240715
  Serious: No
  Sender: FDA-Public Use
  Company Number: US-OPELLA-2024OHG016885

PATIENT

DRUGS (1)
  1. XYZAL [Suspect]
     Active Substance: LEVOCETIRIZINE DIHYDROCHLORIDE
     Indication: Product used for unknown indication
     Dates: start: 20240317

REACTIONS (6)
  - Fluid retention [Recovering/Resolving]
  - Hypertension [Recovering/Resolving]
  - Feeling abnormal [Unknown]
  - Dyspnoea [Unknown]
  - Oedema peripheral [Unknown]
  - Weight increased [Recovering/Resolving]
